FAERS Safety Report 11432228 (Version 1)
Quarter: 2015Q3

REPORT INFORMATION
  Report Type: Spontaneous
  Country: CN (occurrence: CN)
  Receive Date: 20150828
  Receipt Date: 20150828
  Transmission Date: 20151125
  Serious: Yes (Other)
  Sender: FDA-Public Use
  Company Number: CN-BAYER-2015-405004

PATIENT

DRUGS (2)
  1. NEXAVAR [Suspect]
     Active Substance: SORAFENIB
     Indication: METASTASES TO BONE
  2. NEXAVAR [Suspect]
     Active Substance: SORAFENIB
     Indication: GASTRIC CANCER STAGE IV
     Dosage: 400 MG, BID
     Dates: start: 2015, end: 2015

REACTIONS (5)
  - Platelet count decreased [None]
  - Haemoglobin decreased [None]
  - Bone marrow failure [None]
  - White blood cell count decreased [None]
  - Off label use [None]
